FAERS Safety Report 19216508 (Version 2)
Quarter: 2021Q2

REPORT INFORMATION
  Report Type: Spontaneous
  Country: US (occurrence: US)
  Receive Date: 20210505
  Receipt Date: 20210601
  Transmission Date: 20210717
  Serious: No
  Sender: FDA-Public Use
  Company Number: US-SA-2021SA146839

PATIENT
  Sex: Male

DRUGS (1)
  1. DUPIXENT [Suspect]
     Active Substance: DUPILUMAB
     Indication: DERMATITIS ATOPIC
     Dosage: 300 MG, QOW
     Route: 058

REACTIONS (7)
  - Pruritus [Unknown]
  - Dry skin [Unknown]
  - Erythema [Recovering/Resolving]
  - Skin irritation [Recovering/Resolving]
  - Acne [Recovering/Resolving]
  - Skin exfoliation [Unknown]
  - Dermatitis [Unknown]
